FAERS Safety Report 11491001 (Version 2)
Quarter: 2015Q3

REPORT INFORMATION
  Report Type: Spontaneous
  Country: US (occurrence: US)
  Receive Date: 20150910
  Receipt Date: 20150921
  Transmission Date: 20151125
  Serious: Yes (Other)
  Sender: FDA-Public Use
  Company Number: US-JNJFOC-20150902680

PATIENT

DRUGS (1)
  1. ABIRATERONE ACETATE [Suspect]
     Active Substance: ABIRATERONE ACETATE
     Indication: PROSTATE CANCER METASTATIC
     Route: 048

REACTIONS (5)
  - Drug ineffective [Unknown]
  - Nonspecific reaction [Unknown]
  - Prostatic specific antigen abnormal [Unknown]
  - Rectal haemorrhage [Unknown]
  - Alanine aminotransferase increased [Unknown]
